FAERS Safety Report 5110636-0 (Version None)
Quarter: 2006Q3

REPORT INFORMATION
  Report Type: 
  Country: None (occurrence: None)
  Receive Date: 20060731
  Receipt Date: 20060612
  Transmission Date: 20061208
  Serious: No
  Sender: FDA-Public Use
  Company Number: 2006PV015433

PATIENT
  Age: 64 Year
  Sex: Female
  Weight: 90.7194 kg

DRUGS (5)
  1. BYETTA [Suspect]
     Indication: DIABETES MELLITUS NON-INSULIN-DEPENDENT
     Dosage: 5 MCG;BID;SC
     Route: 058
     Dates: start: 20060611
  2. LEVOTHYROXINE SODIUM [Concomitant]
  3. MICARDIS HCT [Concomitant]
  4. ZOCOR [Concomitant]
  5. DIABETES MEDICATIONS (NAME UNKNOWN) [Concomitant]

REACTIONS (4)
  - ABDOMINAL PAIN [None]
  - DIARRHOEA [None]
  - ERYTHEMA [None]
  - INJECTION SITE HAEMORRHAGE [None]
